FAERS Safety Report 6308412-6 (Version None)
Quarter: 2009Q3

REPORT INFORMATION
  Report Type: 
  Country: None (occurrence: None)
  Receive Date: 20090813
  Receipt Date: 20090807
  Transmission Date: 20100115
  Serious: Yes (Death, Other)
  Sender: FDA-Public Use
  Company Number: US-BAXTER-2009BH012518

PATIENT
  Age: 84 Year
  Sex: Male
  Weight: 75 kg

DRUGS (6)
  1. REGLAN [Suspect]
     Indication: NAUSEA
     Route: 042
     Dates: start: 20090401, end: 20090401
  2. DILAUDID [Concomitant]
     Indication: PAIN
     Route: 042
     Dates: start: 20090330, end: 20090401
  3. ZYVOX [Concomitant]
     Indication: OSTEOMYELITIS
     Route: 042
     Dates: start: 20090201, end: 20090401
  4. COMPAZINE [Concomitant]
     Indication: NAUSEA
     Route: 065
     Dates: start: 20090401, end: 20090401
  5. LASIX [Concomitant]
     Indication: CARDIAC FAILURE CONGESTIVE
     Route: 065
  6. ASPIRIN [Concomitant]
     Indication: PROPHYLAXIS
     Route: 065

REACTIONS (2)
  - DEATH [None]
  - DYSTONIA [None]
